FAERS Safety Report 20091738 (Version 1)
Quarter: 2021Q4

REPORT INFORMATION
  Report Type: Report from Study
  Country: US (occurrence: US)
  Receive Date: 20211119
  Receipt Date: 20211119
  Transmission Date: 20220303
  Serious: Yes (Other)
  Sender: FDA-Public Use
  Company Number: US-UCBSA-2021053580

PATIENT

DRUGS (1)
  1. LEVETIRACETAM [Suspect]
     Active Substance: LEVETIRACETAM
     Indication: Seizure
     Dosage: GREATER THAN 1000 MG
     Route: 042

REACTIONS (5)
  - Bradycardia [Unknown]
  - Hypotension [Unknown]
  - Sedation [Unknown]
  - Injection site extravasation [Unknown]
  - Injection site phlebitis [Unknown]
